FAERS Safety Report 23478801 (Version 1)
Quarter: 2024Q1

REPORT INFORMATION
  Report Type: Spontaneous
  Country: FR (occurrence: FR)
  Receive Date: 20240205
  Receipt Date: 20240205
  Transmission Date: 20240409
  Serious: No
  Sender: FDA-Public Use
  Company Number: FR-IPSEN Group, Research and Development-2023-26601

PATIENT
  Age: 12 Year
  Sex: Male

DRUGS (3)
  1. CABOMETYX [Suspect]
     Active Substance: CABOZANTINIB S-MALATE
     Indication: Osteosarcoma
     Route: 065
  2. CABOMETYX [Suspect]
     Active Substance: CABOZANTINIB S-MALATE
     Indication: Metastases to lung
  3. CABOMETYX [Suspect]
     Active Substance: CABOZANTINIB S-MALATE
     Indication: Off label use

REACTIONS (3)
  - Diarrhoea [Unknown]
  - Off label use [Unknown]
  - Off label use [Unknown]
